FAERS Safety Report 7299377-1 (Version None)
Quarter: 2011Q1

REPORT INFORMATION
  Report Type: 
  Country: None (occurrence: None)
  Receive Date: 20110217
  Receipt Date: 20110210
  Transmission Date: 20110831
  Serious: Yes (Other)
  Sender: FDA-Public Use
  Company Number: B0691073A

PATIENT
  Sex: Female

DRUGS (7)
  1. TEGRETOL [Concomitant]
     Indication: EPILEPSY
     Route: 048
     Dates: end: 20101213
  2. RIVOTRIL [Concomitant]
     Dosage: .5MG PER DAY
     Route: 048
     Dates: start: 20101018, end: 20101224
  3. LAMICTAL [Suspect]
     Indication: EPILEPSY
     Dosage: 50MG PER DAY
     Route: 048
     Dates: start: 20100913, end: 20101224
  4. TEGRETOL [Concomitant]
     Dosage: 50MG PER DAY
     Route: 048
     Dates: start: 20101129, end: 20101213
  5. TEGRETOL [Concomitant]
     Dosage: 600MG PER DAY
     Route: 048
     Dates: start: 20100913
  6. CELECOXIB [Suspect]
     Indication: ARTHRALGIA
     Dosage: 200MG PER DAY
     Route: 048
     Dates: start: 20101213, end: 20101224
  7. ALEVIATIN [Concomitant]
     Dosage: 100MG PER DAY
     Dates: start: 20100922, end: 20100928

REACTIONS (13)
  - ERYTHEMA [None]
  - CONJUNCTIVAL HYPERAEMIA [None]
  - GAMMA-GLUTAMYLTRANSFERASE INCREASED [None]
  - ERYTHEMA MULTIFORME [None]
  - BLOOD LACTATE DEHYDROGENASE INCREASED [None]
  - BLOOD ALKALINE PHOSPHATASE INCREASED [None]
  - NEUTROPHIL PERCENTAGE INCREASED [None]
  - BLOOD POTASSIUM DECREASED [None]
  - RASH [None]
  - PRURITUS [None]
  - BLOOD CHOLESTEROL INCREASED [None]
  - LYMPHOCYTE PERCENTAGE DECREASED [None]
  - BLOOD SODIUM DECREASED [None]
